FAERS Safety Report 26112714 (Version 2)
Quarter: 2025Q4

REPORT INFORMATION
  Report Type: Spontaneous
  Country: EU (occurrence: EU)
  Receive Date: 20251202
  Receipt Date: 20251229
  Transmission Date: 20260118
  Serious: Yes (Other)
  Sender: SANDOZ
  Company Number: EU-SANDOZ-SDZ2025IT090700

PATIENT
  Age: 75 Year
  Sex: Male

DRUGS (2)
  1. ALLOPURINOL [Suspect]
     Active Substance: ALLOPURINOL
     Indication: Product used for unknown indication
     Dosage: 300 MG
  2. ALLOPURINOL [Suspect]
     Active Substance: ALLOPURINOL
     Dosage: 150 MG

REACTIONS (2)
  - Prostatic specific antigen increased [Unknown]
  - Wrong technique in product usage process [Unknown]
